FAERS Safety Report 11982148 (Version 1)
Quarter: 2016Q1

REPORT INFORMATION
  Report Type: Spontaneous
  Country: US (occurrence: US)
  Receive Date: 20160201
  Receipt Date: 20160201
  Transmission Date: 20160526
  Serious: Yes (Other)
  Sender: FDA-Public Use
  Company Number: US-BEH-2016058078

PATIENT
  Age: 72 Year
  Sex: Female
  Weight: 67 kg

DRUGS (17)
  1. AMLODIPINE [Concomitant]
     Active Substance: AMLODIPINE BESYLATE
  2. DOXYCYCLINE. [Concomitant]
     Active Substance: DOXYCYCLINE
  3. FAMOTIDINE. [Concomitant]
     Active Substance: FAMOTIDINE
  4. HIZENTRA [Suspect]
     Active Substance: HUMAN IMMUNOGLOBULIN G
     Dosage: 1 GM 5 ML VIAL
     Route: 058
     Dates: start: 20100805
  5. IMODIUM [Concomitant]
     Active Substance: LOPERAMIDE HYDROCHLORIDE
  6. LOSARTAN. [Concomitant]
     Active Substance: LOSARTAN
  7. WARFARIN [Concomitant]
     Active Substance: WARFARIN
  8. OMNARIS [Concomitant]
     Active Substance: CICLESONIDE
  9. ACIDOPHILUS [Concomitant]
     Active Substance: LACTOBACILLUS ACIDOPHILUS
  10. LOPRAMIDE [Concomitant]
  11. ATENOLOL. [Concomitant]
     Active Substance: ATENOLOL
  12. BENADRYL [Concomitant]
     Active Substance: DIPHENHYDRAMINE HYDROCHLORIDE
  13. HIZENTRA [Suspect]
     Active Substance: HUMAN IMMUNOGLOBULIN G
     Indication: IMMUNODEFICIENCY COMMON VARIABLE
     Dosage: 4 GM 20 ML VIAL
     Route: 058
     Dates: start: 20100805
  14. PANTOPRAZOLE [Concomitant]
     Active Substance: PANTOPRAZOLE SODIUM
  15. DIFLUCAN [Concomitant]
     Active Substance: FLUCONAZOLE
  16. PATANASE [Concomitant]
     Active Substance: OLOPATADINE HYDROCHLORIDE
  17. CLINDAMYCIN [Concomitant]
     Active Substance: CLINDAMYCIN\CLINDAMYCIN PHOSPHATE

REACTIONS (1)
  - Respiratory tract infection [Unknown]

NARRATIVE: CASE EVENT DATE: 201512
